FAERS Safety Report 21349367 (Version 2)
Quarter: 2023Q1

REPORT INFORMATION
  Report Type: Spontaneous
  Country: US (occurrence: US)
  Receive Date: 20220919
  Receipt Date: 20230112
  Transmission Date: 20230417
  Serious: Yes (Hospitalization, Other)
  Sender: FDA-Public Use
  Company Number: US-AMGEN-USASP2022158647

PATIENT
  Age: 90 Year
  Sex: Female
  Weight: 42.63 kg

DRUGS (9)
  1. PROLIA [Suspect]
     Active Substance: DENOSUMAB
     Indication: Osteoporosis postmenopausal
     Dosage: 60 MILLIGRAM, Q6MO
     Route: 058
     Dates: start: 20181125
  2. SERTRALINE [Concomitant]
     Active Substance: SERTRALINE HYDROCHLORIDE
     Dosage: 25 MILLIGRAM, QD
     Route: 048
     Dates: start: 20210807, end: 20220808
  3. AMLODIPINE [Concomitant]
     Active Substance: AMLODIPINE BESYLATE
     Dosage: 5 MILLIGRAM, QD
     Route: 048
  4. PRAVASTATIN [Concomitant]
     Active Substance: PRAVASTATIN
     Dosage: 20 MILLIGRAM, QD
     Route: 048
     Dates: start: 20220118, end: 20220314
  5. OCUVITE [Concomitant]
     Active Substance: VITAMINS
     Dosage: 1 TABLET, QD
  6. VITAMIN B12 [Concomitant]
     Active Substance: CYANOCOBALAMIN
     Dosage: 1000 MILLIGRAM, QD
     Route: 048
     Dates: start: 20110321
  7. MAGNESIUM [Concomitant]
     Active Substance: MAGNESIUM
     Dosage: 250 MILLIGRAM, QD (EVERY DAY IN THE EVENING)
     Route: 048
     Dates: start: 20200529
  8. VITAMIN D [Concomitant]
     Active Substance: VITAMIN D NOS
     Dosage: 1000 UNIT (2), QD
     Route: 048
     Dates: start: 20090706
  9. IRBESARTAN [Concomitant]
     Active Substance: IRBESARTAN
     Dosage: 150 MILLIGRAM, QD
     Route: 048

REACTIONS (9)
  - Femur fracture [Unknown]
  - Mean cell haemoglobin concentration decreased [Unknown]
  - Red cell distribution width increased [Unknown]
  - Mean platelet volume increased [Unknown]
  - Lymphocyte count decreased [Unknown]
  - Eosinophil count decreased [Unknown]
  - Blood glucose increased [Unknown]
  - Protein total decreased [Unknown]
  - Neutrophil count increased [Unknown]

NARRATIVE: CASE EVENT DATE: 20220723
